FAERS Safety Report 18656934 (Version 1)
Quarter: 2020Q4

REPORT INFORMATION
  Report Type: Spontaneous
  Country: ES (occurrence: ES)
  Receive Date: 20201223
  Receipt Date: 20201223
  Transmission Date: 20210114
  Serious: Yes (Other)
  Sender: FDA-Public Use
  Company Number: ES-JNJFOC-20201240515

PATIENT
  Age: 53 Year
  Sex: Female

DRUGS (1)
  1. SPRAVATO [Suspect]
     Active Substance: ESKETAMINE
     Indication: DEPRESSION
     Dosage: 28MG VIAL 2 SPRAYS
     Dates: start: 20200930

REACTIONS (2)
  - Product use in unapproved indication [Unknown]
  - Dissociation [Recovering/Resolving]

NARRATIVE: CASE EVENT DATE: 20201007
